FAERS Safety Report 14252631 (Version 2)
Quarter: 2018Q2

REPORT INFORMATION
  Report Type: Spontaneous
  Country: US (occurrence: US)
  Receive Date: 20171205
  Receipt Date: 20180510
  Transmission Date: 20180711
  Serious: Yes (Other)
  Sender: FDA-Public Use
  Company Number: US-PFIZER INC-2017273574

PATIENT
  Age: 67 Year
  Sex: Female
  Weight: 54.43 kg

DRUGS (6)
  1. VITAMIN E [Concomitant]
     Active Substance: .ALPHA.-TOCOPHEROL
     Indication: SUPPLEMENTATION THERAPY
     Dosage: 500 MG, 1X/DAY
  2. IRON [Concomitant]
     Active Substance: IRON
     Indication: BLOOD DISORDER
     Dosage: 27 MG, 1X/DAY
  3. LASIX [Concomitant]
     Active Substance: FUROSEMIDE
     Indication: OEDEMA PERIPHERAL
     Dosage: 40 MG, AS NEEDED
     Dates: start: 2014
  4. VITAMIN D [Concomitant]
     Active Substance: CHOLECALCIFEROL
     Indication: SUPPLEMENTATION THERAPY
     Dosage: 1000 IU, 1X/DAY
  5. VITAMIN B COMPLEX WITH VITAMIN C + FOLIC ACID [Concomitant]
     Indication: SUPPLEMENTATION THERAPY
     Dosage: UNK, 1X/DAY
  6. XELJANZ XR [Suspect]
     Active Substance: TOFACITINIB CITRATE
     Indication: RHEUMATOID ARTHRITIS
     Dosage: 11 MG, ONCE DAILY
     Route: 048
     Dates: start: 201701, end: 2017

REACTIONS (4)
  - Arthritis [Unknown]
  - Condition aggravated [Unknown]
  - Cyst [Unknown]
  - Joint noise [Unknown]

NARRATIVE: CASE EVENT DATE: 2017
